FAERS Safety Report 11138553 (Version 1)
Quarter: 2015Q2

REPORT INFORMATION
  Report Type: Spontaneous
  Country: US (occurrence: US)
  Receive Date: 20150527
  Receipt Date: 20150527
  Transmission Date: 20150821
  Serious: No
  Sender: FDA-Public Use
  Company Number: US-TEVA-526869USA

PATIENT
  Sex: Female

DRUGS (1)
  1. SOTALOL. [Suspect]
     Active Substance: SOTALOL
     Route: 065

REACTIONS (5)
  - Vaginal mucosal blistering [Unknown]
  - Joint swelling [Unknown]
  - Skin exfoliation [Unknown]
  - Blister [Unknown]
  - Diarrhoea [Unknown]
